FAERS Safety Report 25645217 (Version 1)
Quarter: 2025Q3

REPORT INFORMATION
  Report Type: Spontaneous
  Country: US (occurrence: US)
  Receive Date: 20250805
  Receipt Date: 20250805
  Transmission Date: 20251021
  Serious: Yes (Other)
  Sender: ELI LILLY AND COMPANY
  Company Number: US-ELI_LILLY_AND_COMPANY-US202507026676

PATIENT

DRUGS (1)
  1. ZEPBOUND [Suspect]
     Active Substance: TIRZEPATIDE
     Indication: Product used for unknown indication
     Route: 065

REACTIONS (7)
  - Cerebrovascular accident [Unknown]
  - Cerebrovascular accident [Unknown]
  - Thyroid disorder [Unknown]
  - Vision blurred [Unknown]
  - Feeling abnormal [Unknown]
  - Confusional state [Unknown]
  - Abdominal discomfort [Unknown]
